FAERS Safety Report 7395486-7 (Version None)
Quarter: 2011Q2

REPORT INFORMATION
  Report Type: 
  Country: None (occurrence: None)
  Receive Date: 20110405
  Receipt Date: 20110330
  Transmission Date: 20111010
  Serious: Yes (Disabling, Other)
  Sender: FDA-Public Use
  Company Number: US-PFIZER INC-2010049840

PATIENT
  Sex: Female

DRUGS (7)
  1. EFFEXOR [Suspect]
     Indication: SOCIAL PHOBIA
  2. XANAX [Suspect]
     Dosage: 1 MG, 2X/DAY
  3. EFFEXOR [Suspect]
     Indication: BIPOLAR DISORDER
     Dosage: 225 MG, 1X/DAY
     Route: 048
     Dates: start: 20090101
  4. EFFEXOR [Suspect]
     Indication: SCHIZOPHRENIA
  5. EFFEXOR [Suspect]
     Indication: MENTAL IMPAIRMENT
  6. LITHIUM [Concomitant]
     Dosage: UNK
  7. PHENTERMINE [Concomitant]
     Dosage: UNK

REACTIONS (10)
  - WEIGHT INCREASED [None]
  - SOMNOLENCE [None]
  - ROAD TRAFFIC ACCIDENT [None]
  - FINGER AMPUTATION [None]
  - BIPOLAR DISORDER [None]
  - SCHIZOPHRENIA [None]
  - SOCIAL PHOBIA [None]
  - MENTAL STATUS CHANGES [None]
  - DRUG SCREEN FALSE POSITIVE [None]
  - MALAISE [None]
